FAERS Safety Report 4788008-8 (Version None)
Quarter: 2005Q3

REPORT INFORMATION
  Report Type: 
  Country: None (occurrence: None)
  Receive Date: 20050914
  Receipt Date: 20050812
  Transmission Date: 20060218
  Serious: Yes (Other)
  Sender: FDA-Public Use
  Company Number: 414073

PATIENT
  Age: 65 Year
  Sex: Female

DRUGS (1)
  1. BONIVA [Suspect]
     Indication: OSTEOPOROSIS
     Dosage: 150 MG 1  PER DAY ORAL
     Route: 048
     Dates: start: 20050615, end: 20050615

REACTIONS (3)
  - ARTHRALGIA [None]
  - BONE PAIN [None]
  - MUSCLE SPASMS [None]
